FAERS Safety Report 4627193-5 (Version None)
Quarter: 2005Q2

REPORT INFORMATION
  Report Type: 
  Country: None (occurrence: None)
  Receive Date: 20050405
  Receipt Date: 20050329
  Transmission Date: 20051028
  Serious: Yes (Other)
  Sender: FDA-Public Use
  Company Number: US-BRISTOL-MYERS SQUIBB COMPANY-12913174

PATIENT
  Age: 52 Year
  Sex: Male
  Weight: 94 kg

DRUGS (4)
  1. CETUXIMAB [Suspect]
     Indication: METASTATIC RENAL CELL CARCINOMA
     Dosage: COURSE 1 23-NOV-2004. TOTAL DOSE ADMINISTERED FROM START OF THERAPY TO EVENT 9525 MG.
     Route: 042
     Dates: start: 20050314, end: 20050314
  2. ERLOTINIB [Suspect]
     Indication: METASTATIC RENAL CELL CARCINOMA
     Dosage: 1ST COURSE 23-NOV-2004. TOTAL DOSE 11900 MG RECEIVED FROM START OF THERAPY TO DATE OF EVENT.
     Route: 048
     Dates: start: 20050321, end: 20050321
  3. LASIX [Suspect]
  4. ZOMETA [Suspect]

REACTIONS (4)
  - HYPOCALCAEMIA [None]
  - HYPOKALAEMIA [None]
  - HYPOMAGNESAEMIA [None]
  - MUSCLE SPASMS [None]
